FAERS Safety Report 10592721 (Version 1)
Quarter: 2014Q4

REPORT INFORMATION
  Report Type: Report from Study
  Country: NL (occurrence: NL)
  Receive Date: 20141119
  Receipt Date: 20141119
  Transmission Date: 20150529
  Serious: Yes (Hospitalization)
  Sender: FDA-Public Use
  Company Number: NL-AMGEN-NLDSL2013094717

PATIENT
  Age: 70 Year
  Sex: Male

DRUGS (1)
  1. NEULASTA [Suspect]
     Active Substance: PEGFILGRASTIM
     Indication: PROSTATE CANCER
     Dosage: 10 MG/ML, Q3WK
     Route: 065

REACTIONS (2)
  - Drug ineffective [Unknown]
  - Hospitalisation [Unknown]
